FAERS Safety Report 20214383 (Version 1)
Quarter: 2021Q4

REPORT INFORMATION
  Report Type: Spontaneous
  Country: IN (occurrence: IN)
  Receive Date: 20211221
  Receipt Date: 20211221
  Transmission Date: 20220303
  Serious: Yes (Hospitalization, Other)
  Sender: FDA-Public Use
  Company Number: IN-009507513-2112IND006351

PATIENT
  Age: 74 Year
  Sex: Male

DRUGS (1)
  1. POSACONAZOLE [Suspect]
     Active Substance: POSACONAZOLE
     Route: 048

REACTIONS (4)
  - Cardiac failure [Unknown]
  - Hypoglycaemia [Unknown]
  - Abdominal discomfort [Unknown]
  - Diarrhoea [Unknown]
